FAERS Safety Report 4599745-2 (Version None)
Quarter: 2005Q1

REPORT INFORMATION
  Report Type: 
  Country: None (occurrence: None)
  Receive Date: 20050303
  Receipt Date: 20050223
  Transmission Date: 20050727
  Serious: Yes (Hospitalization)
  Sender: FDA-Public Use
  Company Number: 05-NIP00021

PATIENT
  Age: 54 Year
  Sex: Male

DRUGS (16)
  1. NIPENT [Suspect]
     Indication: B-CELL SMALL LYMPHOCYTIC LYMPHOMA
     Dosage: 0.8571 MG (9 MG. D 1 + 8 Q 3WKS). INTRAVENOUS
     Route: 042
     Dates: start: 20040915, end: 20050112
  2. CYTOXAN [Suspect]
     Dosage: 65.4762 MG (1375 MG, DAY 1 Q 3 WKS). INTRAVENOUS
     Route: 042
     Dates: start: 20040915, end: 20050112
  3. NITROGLYCERIN [Concomitant]
  4. TOPROL-XL [Concomitant]
  5. COREG [Concomitant]
  6. MAGNESIUM OXIDE [Concomitant]
  7. ALDACTONE [Concomitant]
  8. LASIX [Concomitant]
  9. K-DUR 10 [Concomitant]
  10. ASPIRIN [Concomitant]
  11. LISINOPRIL [Concomitant]
  12. ALBUTEROL [Concomitant]
  13. ACYCLOVIR [Concomitant]
  14. BACTRIM DS [Concomitant]
  15. COMPAZINE [Concomitant]
  16. ADVAIR (ADVAIR DISCUS) [Concomitant]

REACTIONS (7)
  - BRADYCARDIA [None]
  - CARDIAC FAILURE CONGESTIVE [None]
  - CHEST DISCOMFORT [None]
  - DYSPNOEA [None]
  - ELECTROCARDIOGRAM ST-T CHANGE [None]
  - GASTROENTERITIS [None]
  - VOMITING [None]
